FAERS Safety Report 10790100 (Version 2)
Quarter: 2015Q1

REPORT INFORMATION
  Report Type: Spontaneous
  Country: US (occurrence: US)
  Receive Date: 20150212
  Receipt Date: 20150227
  Transmission Date: 20150721
  Serious: Yes (Other)
  Sender: FDA-Public Use
  Company Number: US-BAYER-2015-017927

PATIENT
  Age: 67 Year
  Sex: Male

DRUGS (2)
  1. GADAVIST [Suspect]
     Active Substance: GADOBUTROL
     Indication: NUCLEAR MAGNETIC RESONANCE IMAGING ABDOMINAL
     Dosage: 11 ML, ONCE
     Route: 042
     Dates: start: 20150121, end: 20150121
  2. GADAVIST [Suspect]
     Active Substance: GADOBUTROL
     Indication: PROSTATE CANCER

REACTIONS (2)
  - Swollen tongue [Recovered/Resolved]
  - Tongue pruritus [Recovered/Resolved]

NARRATIVE: CASE EVENT DATE: 20150121
